FAERS Safety Report 13125577 (Version 1)
Quarter: 2017Q1

REPORT INFORMATION
  Report Type: Spontaneous
  Country: US (occurrence: US)
  Receive Date: 20170117
  Receipt Date: 20170117
  Transmission Date: 20170428
  Serious: Yes (Other)
  Sender: FDA-Public Use
  Company Number: None

PATIENT
  Age: 28 Year
  Sex: Female
  Weight: 53.1 kg

DRUGS (1)
  1. MONTELUKAST [Suspect]
     Active Substance: MONTELUKAST SODIUM
     Indication: MULTIPLE ALLERGIES
     Dates: start: 20160901, end: 20170109

REACTIONS (7)
  - Cognitive disorder [None]
  - Headache [None]
  - Mood altered [None]
  - Depression [None]
  - Job dissatisfaction [None]
  - Amnesia [None]
  - Irritability [None]

NARRATIVE: CASE EVENT DATE: 20170117
